FAERS Safety Report 9964689 (Version 1)
Quarter: 2014Q1

REPORT INFORMATION
  Report Type: Spontaneous
  Country: US (occurrence: US)
  Receive Date: 20140305
  Receipt Date: 20140305
  Transmission Date: 20141002
  Serious: No
  Sender: FDA-Public Use
  Company Number: US-AMGEN-USASP2013087476

PATIENT
  Age: 61 Year
  Sex: Female
  Weight: 56.24 kg

DRUGS (10)
  1. ENBREL [Suspect]
     Indication: PRODUCT USED FOR UNKNOWN INDICATION
     Dosage: 50 MG, QWK
     Route: 058
  2. CALTRATE + D                       /00944201/ [Concomitant]
     Dosage: 600-800, UNK
  3. METHOTREXATE [Concomitant]
     Dosage: 2.5 MG, UNK
  4. PREDNISONE [Concomitant]
     Dosage: 5 MG, UNK
  5. MIMVEY [Concomitant]
     Dosage: 1 - 0.5 MG, UNK
  6. SIMVASTATIN [Concomitant]
     Dosage: 20 MG, UNK
  7. LEVOTHYROXIN [Concomitant]
     Dosage: 75 MUG, UNK
  8. CLARITIN                           /00917501/ [Concomitant]
     Dosage: 10 MG, UNK
  9. ALEVE [Concomitant]
     Dosage: 220 MG, UNK
  10. FOLIC ACID [Concomitant]
     Dosage: UNK

REACTIONS (2)
  - Weight increased [Unknown]
  - Rheumatoid arthritis [Unknown]
